FAERS Safety Report 6025529-4 (Version None)
Quarter: 2008Q4

REPORT INFORMATION
  Report Type: 
  Country: None (occurrence: None)
  Receive Date: 20081224
  Receipt Date: 20081219
  Transmission Date: 20090506
  Serious: Yes (Other)
  Sender: FDA-Public Use
  Company Number: 2008US003484

PATIENT
  Age: 82 Year
  Sex: Female
  Weight: 47.2 kg

DRUGS (30)
  1. AMBISOME [Suspect]
     Indication: FUNGAL INFECTION
     Dosage: 100 MG, UID/QD, IV DRIP
     Route: 041
     Dates: start: 20071218, end: 20071225
  2. MEROPEN(MEROPENEM TRIHYDRATE) [Suspect]
     Indication: DRUG USE FOR UNKNOWN INDICATION
     Dosage: IV DRIP
     Route: 041
     Dates: start: 20071218, end: 20071225
  3. VANCOMYCIN HYDROCHLORIDE [Suspect]
     Indication: DRUG USE FOR UNKNOWN INDICATION
     Dosage: 0.5 G, UID/QD, IV DRIP
     Route: 041
     Dates: start: 20071218, end: 20071225
  4. OMEGACIN(BIAPENEM) [Suspect]
     Indication: DRUG USE FOR UNKNOWN INDICATION
     Dosage: 300 MG, UID/QD, IV DRIP
     Route: 041
     Dates: start: 20071225, end: 20071225
  5. ADONA (CARBAZOCHROME SODIUM SULFONATE) [Concomitant]
  6. GASMOTIN (MOSAPRIDE CITRATE) [Concomitant]
  7. SIGMART (NICORANDIL) [Concomitant]
  8. CIPROFLOXACIN HCL [Concomitant]
  9. DEPAS (ETIZOLAM) [Concomitant]
  10. SULFAMETHOXAZOLE AND TRIMETHOPRIM [Concomitant]
  11. RABEPRAZOLE SODIUM [Concomitant]
  12. BERIZYM (ENZYMES NOS) [Concomitant]
  13. LASIX [Concomitant]
  14. CALONAL [Concomitant]
  15. SOLU-CORTEF [Concomitant]
  16. SOLDEM 1 (GLUCOSE, SODIUM CHLORIDE, SODIUM LACTATE) [Concomitant]
  17. NITRODERM [Concomitant]
  18. VOLTAREN [Concomitant]
  19. PHYSIO (GLUCOSE, MAGNESIUM CHLORIDE ANHYDROUS, SODIUM ACETATE, POTASSI [Concomitant]
  20. PREDNISOLONE [Concomitant]
  21. HEPARIN NA LOCK [Concomitant]
  22. DOPAMINE HYDROCHLORIDE [Concomitant]
  23. RED BLOOD CELLS [Concomitant]
  24. PLATELETS [Concomitant]
  25. TARIVID (OFLOXACIN) [Concomitant]
  26. BETAMETHASONE SODIUM PHOSPHATE [Concomitant]
  27. LANTUS [Concomitant]
  28. RHYTHMY (RILMAZAFONE HYDROCHLORIDE) [Concomitant]
  29. PURSENNID (SENNOSIDE A+B) [Concomitant]
  30. HUMALOG [Concomitant]

REACTIONS (3)
  - CARDIAC FAILURE [None]
  - DISORIENTATION [None]
  - HYPERGLYCAEMIA [None]
